FAERS Safety Report 19201814 (Version 1)
Quarter: 2021Q2

REPORT INFORMATION
  Report Type: Report from Study
  Country: US (occurrence: US)
  Receive Date: 20210430
  Receipt Date: 20210430
  Transmission Date: 20210717
  Serious: Yes (Death)
  Sender: FDA-Public Use
  Company Number: US-JNJFOC-20210446701

PATIENT
  Age: 22 Year
  Sex: Female

DRUGS (10)
  1. HYDROXYZINE [Concomitant]
     Active Substance: HYDROXYZINE HYDROCHLORIDE
  2. SEROQUEL [Concomitant]
     Active Substance: QUETIAPINE FUMARATE
  3. AMITRIPTYLINE [Concomitant]
     Active Substance: AMITRIPTYLINE
  4. SPRAVATO [Suspect]
     Active Substance: ESKETAMINE
     Indication: DEPRESSION
     Dosage: TOTAL 8 DOSES
     Dates: start: 20201013, end: 20201106
  5. SPRAVATO [Suspect]
     Active Substance: ESKETAMINE
     Indication: SUICIDAL IDEATION
     Dosage: TOTAL 4 DOSES
     Dates: start: 20201217, end: 20201231
  6. OXYCODONE [Concomitant]
     Active Substance: OXYCODONE
  7. GABAPENTIN. [Concomitant]
     Active Substance: GABAPENTIN
  8. NORTREL [LEVONORGESTREL] [Concomitant]
  9. AMITRIP [Concomitant]
     Active Substance: AMITRIPTYLINE HYDROCHLORIDE
  10. SPRAVATO [Suspect]
     Active Substance: ESKETAMINE
     Indication: MAJOR DEPRESSION
     Dosage: TOTAL 4 DOSES
     Dates: start: 20201113, end: 20201210

REACTIONS (1)
  - Completed suicide [Fatal]
